FAERS Safety Report 12674457 (Version 1)
Quarter: 2016Q3

REPORT INFORMATION
  Report Type: Spontaneous
  Country: US (occurrence: US)
  Receive Date: 20160822
  Receipt Date: 20160822
  Transmission Date: 20161109
  Serious: No
  Sender: FDA-Public Use
  Company Number: US-BEH-2016059554

PATIENT
  Age: 50 Year
  Sex: Female
  Weight: 71.67 kg

DRUGS (17)
  1. ZEMAIRA [Suspect]
     Active Substance: .ALPHA.1-PROTEINASE INHIBITOR HUMAN
     Indication: OBSTRUCTIVE AIRWAYS DISORDER
  2. PROVENTIL [Concomitant]
     Active Substance: ALBUTEROL
  3. LMX [Concomitant]
     Active Substance: LIDOCAINE
  4. EPIPEN [Concomitant]
     Active Substance: EPINEPHRINE
  5. PRAZOSIN [Concomitant]
     Active Substance: PRAZOSIN
  6. FENOFIBRATE. [Concomitant]
     Active Substance: FENOFIBRATE
  7. NEXIUM [Concomitant]
     Active Substance: ESOMEPRAZOLE MAGNESIUM
  8. SODIUM CHLORIDE. [Concomitant]
     Active Substance: SODIUM CHLORIDE
  9. SYMBICORT [Concomitant]
     Active Substance: BUDESONIDE\FORMOTEROL FUMARATE DIHYDRATE
  10. FISH OIL [Concomitant]
     Active Substance: FISH OIL
  11. ALBUTEROL. [Concomitant]
     Active Substance: ALBUTEROL
  12. DIPHENHYDRAMINE. [Concomitant]
     Active Substance: DIPHENHYDRAMINE
  13. TRAMADOL. [Concomitant]
     Active Substance: TRAMADOL
  14. ZEMAIRA [Suspect]
     Active Substance: .ALPHA.1-PROTEINASE INHIBITOR HUMAN
     Indication: ALPHA-1 ANTI-TRYPSIN DEFICIENCY
     Route: 042
     Dates: start: 20111003
  15. TOPIRAMATE. [Concomitant]
     Active Substance: TOPIRAMATE
  16. AMBIEN [Concomitant]
     Active Substance: ZOLPIDEM TARTRATE
  17. NEURONTIN [Concomitant]
     Active Substance: GABAPENTIN

REACTIONS (1)
  - Nasopharyngitis [Unknown]

NARRATIVE: CASE EVENT DATE: 201512
